FAERS Safety Report 5036608-2 (Version None)
Quarter: 2006Q2

REPORT INFORMATION
  Report Type: 
  Country: None (occurrence: None)
  Receive Date: 20060623
  Receipt Date: 20060601
  Transmission Date: 20061013
  Serious: Yes (Other)
  Sender: FDA-Public Use
  Company Number: SPV1-2006-00096

PATIENT
  Age: 47 Year
  Sex: Female

DRUGS (2)
  1. AGRYLIN 0 [Suspect]
     Dosage: 0.5 MG 2X/DAY BID ORAL
     Route: 048
  2. ASPIRIN (ASCORBIC ACID, ACETYLSALICYLIC ACID) [Concomitant]

REACTIONS (3)
  - CHEST DISCOMFORT [None]
  - PERIPHERAL COLDNESS [None]
  - TACHYCARDIA [None]
